FAERS Safety Report 6227512-2 (Version None)
Quarter: 2009Q2

REPORT INFORMATION
  Report Type: 
  Country: None (occurrence: None)
  Receive Date: 20090612
  Receipt Date: 20090610
  Transmission Date: 20091009
  Serious: Yes (Other)
  Sender: FDA-Public Use
  Company Number: PHEH2009US05587

PATIENT
  Sex: Female

DRUGS (3)
  1. STALEVO 100 [Suspect]
     Dosage: 150 MG, UNK
  2. STALEVO 100 [Suspect]
     Dosage: 200 MG, UNK
  3. SINEMET [Concomitant]
     Dosage: UNK, UNK

REACTIONS (5)
  - ABASIA [None]
  - ASTHENIA [None]
  - CHROMATURIA [None]
  - DRUG INEFFECTIVE [None]
  - MALAISE [None]
